FAERS Safety Report 24033229 (Version 1)
Quarter: 2024Q3

REPORT INFORMATION
  Report Type: Spontaneous
  Country: US (occurrence: US)
  Receive Date: 20240701
  Receipt Date: 20240701
  Transmission Date: 20241017
  Serious: Yes (Hospitalization, Other)
  Sender: HIKMA
  Company Number: US-MLMSERVICE-20240415-PI017618-00201-1

PATIENT
  Age: 38 Year
  Sex: Female

DRUGS (7)
  1. LIDOCAINE [Suspect]
     Active Substance: LIDOCAINE
     Dosage: ONLY ONE DEMAND BOLUS DELIVERED ON POD 3 [DEMAND BOLUS 10ML EVERY 30 MINUTES]
     Route: 040
  2. LIDOCAINE [Suspect]
     Active Substance: LIDOCAINE
     Indication: Local anaesthesia
     Dosage: AUTO BOLUS 15ML EVERY 2 HOURS, AND DEMAND BOLUS 10ML EVERY 30 MINUTES
     Route: 040
  3. EPINEPHRINE [Concomitant]
     Active Substance: EPINEPHRINE
     Dosage: REDUCED TO 0.01 ?G/KG/MIN ON POD 2
     Route: 065
  4. EPINEPHRINE [Concomitant]
     Active Substance: EPINEPHRINE
     Indication: Product used for unknown indication
     Dosage: 0.08 MICROGRAM/KILOGRAM PER MINUTE
     Route: 065
  5. NITRIC OXIDE [Concomitant]
     Active Substance: NITRIC OXIDE
     Dosage: 20PPM OF INHALED NITRIC OXIDE (INO)
     Route: 055
  6. NITRIC OXIDE [Concomitant]
     Active Substance: NITRIC OXIDE
     Dosage: ON POD 2 TAPERED
     Route: 055
  7. NITRIC OXIDE [Concomitant]
     Active Substance: NITRIC OXIDE
     Indication: Product used for unknown indication
     Dosage: ON POD 3 TAPERED
     Route: 055

REACTIONS (4)
  - Drug level increased [Recovered/Resolved]
  - Cardiovascular insufficiency [Recovered/Resolved]
  - Blood pressure systolic increased [Recovered/Resolved]
  - Local anaesthetic systemic toxicity [Recovered/Resolved]
